FAERS Safety Report 15663282 (Version 10)
Quarter: 2021Q1

REPORT INFORMATION
  Report Type: Report from Study
  Country: CO (occurrence: CO)
  Receive Date: 20181128
  Receipt Date: 20210303
  Transmission Date: 20210419
  Serious: Yes (Hospitalization, Other)
  Sender: FDA-Public Use
  Company Number: CO-TAKEDA-2018TUS021509

PATIENT
  Age: 46 Year
  Sex: Female
  Weight: 63 kg

DRUGS (2)
  1. AMLODIPINE [Concomitant]
     Active Substance: AMLODIPINE BESYLATE
     Dosage: 5 MILLIGRAM, QD
  2. VEDOLIZUMAB [Suspect]
     Active Substance: VEDOLIZUMAB
     Indication: COLITIS ULCERATIVE
     Dosage: 300 MILLIGRAM
     Route: 042
     Dates: start: 20160929

REACTIONS (15)
  - Breast injury [Not Recovered/Not Resolved]
  - Thyroid mass [Unknown]
  - Pain [Unknown]
  - Asthenia [Unknown]
  - Tuberculin test positive [Unknown]
  - Diarrhoea haemorrhagic [Recovering/Resolving]
  - Neurosurgery [Unknown]
  - Arthralgia [Not Recovered/Not Resolved]
  - Oropharyngeal pain [Not Recovered/Not Resolved]
  - Nasal congestion [Not Recovered/Not Resolved]
  - Headache [Not Recovered/Not Resolved]
  - Back pain [Not Recovered/Not Resolved]
  - Spinal pain [Recovered/Resolved]
  - Lymphadenopathy [Unknown]
  - Influenza like illness [Unknown]

NARRATIVE: CASE EVENT DATE: 201803
